FAERS Safety Report 8802872 (Version 3)
Quarter: 2013Q1

REPORT INFORMATION
  Report Type: Report from Study
  Country: US (occurrence: US)
  Receive Date: 20120921
  Receipt Date: 20130308
  Transmission Date: 20140127
  Serious: Yes (Hospitalization)
  Sender: FDA-Public Use
  Company Number: US-ROCHE-1128295

PATIENT
  Age: 57 Year
  Sex: Male

DRUGS (26)
  1. VEMURAFENIB [Suspect]
     Indication: THYROID CANCER
     Dosage: DATE OF LAST DOSE TAKEN:19/JUN/2012, DRUG WAS RESTARTED ON 05/JUL/2012
     Route: 048
     Dates: start: 20111027, end: 20120621
  2. VEMURAFENIB [Suspect]
     Route: 048
     Dates: start: 20120705
  3. LEVOTHYROXINE SODIUM [Concomitant]
     Indication: HYPOTHYROIDISM
     Route: 048
     Dates: start: 20100305
  4. AMLODIPINE [Concomitant]
     Indication: HYPERTENSION
     Route: 048
     Dates: start: 20110916, end: 20111120
  5. AMLODIPINE [Concomitant]
     Route: 065
     Dates: start: 20111121
  6. AMLODIPINE [Concomitant]
     Route: 048
     Dates: start: 20120615, end: 20120619
  7. AMLODIPINE [Concomitant]
     Route: 048
     Dates: start: 20120629, end: 20120705
  8. AMLODIPINE [Concomitant]
     Route: 048
     Dates: start: 20120618, end: 20120619
  9. AMLODIPINE [Concomitant]
     Route: 048
     Dates: start: 20120629, end: 20120705
  10. METOCLOPRAMIDE [Concomitant]
     Indication: NAUSEA
     Route: 048
     Dates: start: 20111020
  11. METOCLOPRAMIDE [Concomitant]
     Route: 065
     Dates: start: 20120101
  12. DIAZEPAM [Concomitant]
     Indication: BACK PAIN
     Route: 048
     Dates: start: 20111020
  13. AMMONIUM LACTATE [Concomitant]
     Dosage: 1 APPLICATION
     Route: 065
     Dates: start: 20111020
  14. AMMONIUM LACTATE [Concomitant]
     Route: 065
     Dates: start: 20111117, end: 20111221
  15. AMMONIUM LACTATE [Concomitant]
     Route: 065
     Dates: start: 20111222
  16. PSYLLIUM [Concomitant]
     Route: 048
     Dates: start: 20110916
  17. CICLOPIROX [Concomitant]
     Dosage: 1 APPLICATION
     Route: 065
     Dates: start: 20111020
  18. CICLOPIROX [Concomitant]
     Dosage: TOPICAL APPLICATION
     Route: 065
  19. AZITHROMYCIN [Concomitant]
     Route: 065
     Dates: start: 20111128
  20. METHYLCELLULOSE [Concomitant]
     Indication: CONSTIPATION
     Route: 048
     Dates: start: 20120625
  21. TAZAROTENE [Concomitant]
     Indication: RASH PUSTULAR
     Route: 065
     Dates: start: 20120119
  22. PREDNISONE [Concomitant]
     Route: 065
     Dates: start: 20120120
  23. GUAIFENESIN [Concomitant]
     Indication: PRODUCTIVE COUGH
     Route: 048
     Dates: start: 20120315
  24. TRIAMCINOLONE [Concomitant]
     Indication: LOCALISED OEDEMA
     Route: 065
     Dates: start: 20120607
  25. SALICYLIC ACID [Concomitant]
     Indication: LOCALISED OEDEMA
     Dosage: TOPICAL APPLICATION
     Route: 065
     Dates: start: 20120607
  26. LEVOFLOXACIN [Concomitant]
     Indication: PRODUCTIVE COUGH
     Route: 048
     Dates: start: 20120409, end: 20120413

REACTIONS (1)
  - Dyspnoea [Recovered/Resolved with Sequelae]
